FAERS Safety Report 5659129-2 (Version None)
Quarter: 2008Q1

REPORT INFORMATION
  Report Type: 
  Country: None (occurrence: None)
  Receive Date: 20080311
  Receipt Date: 20070524
  Transmission Date: 20080703
  Serious: No
  Sender: FDA-Public Use
  Company Number: US-BAYER-200711698BCC

PATIENT
  Sex: Female
  Weight: 79 kg

DRUGS (4)
  1. ALEVE [Suspect]
     Indication: MUSCLE STRAIN
     Dosage: UNIT DOSE: 220 MG
     Route: 048
     Dates: start: 20070523
  2. ALEVE [Suspect]
     Dosage: AS USED: 440/220 MG  UNIT DOSE: 220 MG
     Route: 048
     Dates: start: 20070524
  3. VERAPAMIL [Concomitant]
  4. TOPROL [Concomitant]

REACTIONS (1)
  - VOMITING [None]
